FAERS Safety Report 9357914 (Version 1)
Quarter: 2013Q2

REPORT INFORMATION
  Report Type: Spontaneous
  Country: US (occurrence: None)
  Receive Date: 20130619
  Receipt Date: 20130619
  Transmission Date: 20140414
  Serious: Yes (Other)
  Sender: FDA-Public Use
  Company Number: None

PATIENT
  Age: 74 Year
  Sex: Female
  Weight: 74.84 kg

DRUGS (1)
  1. VASCEPA [Suspect]
     Indication: BLOOD TRIGLYCERIDES
     Dates: start: 20130425, end: 20130520

REACTIONS (10)
  - Dizziness [None]
  - Dizziness [None]
  - Fall [None]
  - Muscle spasms [None]
  - Muscle spasms [None]
  - Arthralgia [None]
  - Musculoskeletal pain [None]
  - Pain in extremity [None]
  - Arthralgia [None]
  - Constipation [None]
